FAERS Safety Report 5496892-8 (Version None)
Quarter: 2007Q4

REPORT INFORMATION
  Report Type: 
  Country: None (occurrence: None)
  Receive Date: 20071025
  Receipt Date: 20070831
  Transmission Date: 20080405
  Serious: No
  Sender: FDA-Public Use
  Company Number: A0678176A

PATIENT
  Sex: Female

DRUGS (1)
  1. ADVAIR DISKUS 100/50 [Suspect]
     Indication: DRUG USE FOR UNKNOWN INDICATION
     Dosage: 1PUFF PER DAY
     Route: 055

REACTIONS (5)
  - ASTHENOPIA [None]
  - DIPLOPIA [None]
  - EYE DISORDER [None]
  - EYE PAIN [None]
  - VISION BLURRED [None]
